FAERS Safety Report 13894198 (Version 1)
Quarter: 2017Q3

REPORT INFORMATION
  Report Type: Spontaneous
  Country: US (occurrence: US)
  Receive Date: 20170822
  Receipt Date: 20170822
  Transmission Date: 20171127
  Serious: Yes (Other)
  Sender: FDA-Public Use
  Company Number: US-MYLANLABS-2017M1050676

PATIENT

DRUGS (1)
  1. GABAPENTIN TABLETS, USP [Suspect]
     Active Substance: GABAPENTIN
     Indication: PRODUCT USED FOR UNKNOWN INDICATION
     Dosage: 600 MG, UNK

REACTIONS (4)
  - Somnolence [Unknown]
  - Suicidal ideation [Unknown]
  - Coordination abnormal [Unknown]
  - Balance disorder [Unknown]
